FAERS Safety Report 19677955 (Version 2)
Quarter: 2021Q3

REPORT INFORMATION
  Report Type: Spontaneous
  Country: US (occurrence: US)
  Receive Date: 20210810
  Receipt Date: 20210825
  Transmission Date: 20211014
  Serious: Yes (Death)
  Sender: FDA-Public Use
  Company Number: US-ONCOPEPPR-00041

PATIENT
  Age: 81 Year
  Sex: Male
  Weight: 64.86 kg

DRUGS (2)
  1. PEPAXTO [Suspect]
     Active Substance: MELPHALAN FLUFENAMIDE
     Indication: PLASMA CELL MYELOMA
     Dosage: NOT REPORTED
     Route: 042
     Dates: start: 20210521
  2. 1326604 (GLOBALC3MAR20): INSULIN PUMP [Concomitant]
     Indication: TYPE 1 DIABETES MELLITUS

REACTIONS (6)
  - Cerebral thrombosis [Unknown]
  - Haemorrhage [Fatal]
  - Diarrhoea [Recovering/Resolving]
  - Haemoglobin decreased [Unknown]
  - White blood cell count decreased [Unknown]
  - Platelet count decreased [Fatal]

NARRATIVE: CASE EVENT DATE: 20210521
